FAERS Safety Report 4303914-6 (Version None)
Quarter: 2004Q1

REPORT INFORMATION
  Report Type: 
  Country: None (occurrence: None)
  Receive Date: 20040225
  Receipt Date: 20040127
  Transmission Date: 20041129
  Serious: Yes (Hospitalization)
  Sender: FDA-Public Use
  Company Number: WAES 0401FRA00070

PATIENT
  Age: 58 Year
  Sex: Male
  Weight: 77 kg

DRUGS (5)
  1. CISPLATIN [Suspect]
     Indication: FOLLICLE CENTRE LYMPHOMA, FOLLICULAR GRADE I, II, III
     Route: 042
     Dates: start: 20031029, end: 20031210
  2. CYTARABINE [Suspect]
     Indication: FOLLICLE CENTRE LYMPHOMA, FOLLICULAR GRADE I, II, III
     Route: 042
     Dates: start: 20031029, end: 20031210
  3. DEXAMETHASONE [Concomitant]
     Indication: FOLLICLE CENTRE LYMPHOMA, FOLLICULAR GRADE I, II, III
     Dates: start: 20031029, end: 20031210
  4. COZAAR [Suspect]
     Indication: HYPERTENSION
     Route: 048
     Dates: start: 20000615, end: 20031216
  5. RITUXIMAB [Concomitant]
     Indication: FOLLICLE CENTRE LYMPHOMA, FOLLICULAR GRADE I, II, III
     Route: 042
     Dates: start: 20031029

REACTIONS (8)
  - ANOREXIA [None]
  - ASTHENIA [None]
  - BONE MARROW DEPRESSION [None]
  - FEBRILE BONE MARROW APLASIA [None]
  - FOLLICLE CENTRE LYMPHOMA, FOLLICULAR GRADE I, II, III [None]
  - FOLLICLE CENTRE LYMPHOMA, FOLLICULAR GRADE I, II, III RECURRENT [None]
  - RENAL FAILURE ACUTE [None]
  - VOMITING [None]
